FAERS Safety Report 8503784-6 (Version None)
Quarter: 2012Q3

REPORT INFORMATION
  Report Type: 
  Country: None (occurrence: None)
  Receive Date: 20120711
  Receipt Date: 20120703
  Transmission Date: 20120928
  Serious: Yes (Hospitalization)
  Sender: FDA-Public Use
  Company Number: JP-VERTEX PHARMACEUTICALS INC.-AE-2012-009981

PATIENT
  Age: 61 Year
  Sex: Female

DRUGS (15)
  1. REBETOL [Concomitant]
     Route: 048
     Dates: start: 20120528, end: 20120603
  2. FAMOTIDINE [Concomitant]
     Route: 048
  3. LAXOBERON [Concomitant]
     Route: 048
  4. TELAVIC (TELAPREVIR) [Suspect]
     Route: 048
     Dates: start: 20120605
  5. AMLODIPINE BESYLATE [Concomitant]
     Route: 048
  6. ASPIRIN [Concomitant]
     Route: 048
  7. EVAMYL [Concomitant]
     Route: 048
  8. TELAVIC (TELAPREVIR) [Suspect]
     Indication: HEPATITIS C
     Route: 048
     Dates: start: 20120510, end: 20120603
  9. PEGINTERFERON ALFA-2B [Concomitant]
     Indication: HEPATITIS C
     Route: 058
     Dates: start: 20120510
  10. LOXONIN [Concomitant]
     Route: 048
     Dates: start: 20120523
  11. JUVELA [Concomitant]
     Route: 048
  12. REBETOL [Concomitant]
     Indication: HEPATITIS C
     Route: 048
     Dates: start: 20120510, end: 20120527
  13. REBETOL [Concomitant]
     Route: 048
     Dates: start: 20120604
  14. MUCOSTA [Concomitant]
     Route: 048
     Dates: start: 20120523
  15. PURSENNID [Concomitant]
     Route: 048

REACTIONS (4)
  - HEADACHE [None]
  - HYPOAESTHESIA [None]
  - DIZZINESS [None]
  - VOMITING [None]
